FAERS Safety Report 13552614 (Version 4)
Quarter: 2017Q4

REPORT INFORMATION
  Report Type: Report from Study
  Country: None (occurrence: US)
  Receive Date: 20170517
  Receipt Date: 20171221
  Transmission Date: 20180320
  Serious: Yes (Hospitalization, Other)
  Sender: FDA-Public Use
  Company Number: US-ABBVIE-17K-163-1976315-00

PATIENT
  Age: 49 Year
  Sex: Male

DRUGS (1)
  1. HUMIRA [Suspect]
     Active Substance: ADALIMUMAB
     Indication: PSORIASIS
     Route: 058

REACTIONS (6)
  - Hernia [Unknown]
  - Dizziness [Unknown]
  - Psoriasis [Unknown]
  - Diabetes mellitus [Unknown]
  - Sinus operation [Unknown]
  - Fatigue [Unknown]

NARRATIVE: CASE EVENT DATE: 201709
